FAERS Safety Report 10389723 (Version 1)
Quarter: 2014Q3

REPORT INFORMATION
  Report Type: Spontaneous
  Country: US (occurrence: None)
  Receive Date: 20140813
  Receipt Date: 20140813
  Transmission Date: 20150326
  Serious: Yes (Hospitalization)
  Sender: FDA-Public Use
  Company Number: US-MDCO-140-00177

PATIENT
  Age: 67 Year
  Sex: Female
  Weight: 67.2 kg

DRUGS (14)
  1. CETIRIZINE (CETIRIZINE) (CETIRIZINE) [Concomitant]
  2. FLUOXETINE [Concomitant]
     Active Substance: FLUOXETINE\FLUOXETINE HYDROCHLORIDE
  3. NITROGLYCERIN (GLYCERYL TRINITRATE) [Concomitant]
  4. POTASSIUM CHLORIDE (POTASSIUM CHLORIDE) [Concomitant]
     Active Substance: POTASSIUM CHLORIDE
  5. NAPROXEN SODIUM. [Concomitant]
     Active Substance: NAPROXEN SODIUM
  6. BIVALIRUDIN [Suspect]
     Active Substance: BIVALIRUDIN
     Indication: ANGIOPLASTY
     Route: 040
     Dates: start: 20140625, end: 20140625
  7. GLIPIZIDE. [Concomitant]
     Active Substance: GLIPIZIDE
  8. HYDROCHLOROTHIAZIDE. [Concomitant]
     Active Substance: HYDROCHLOROTHIAZIDE
  9. LISINOPRIL (LISINOPRIL) (LISINOPRIL) [Concomitant]
     Active Substance: LISINOPRIL
  10. METOPROLOL [Concomitant]
     Active Substance: METOPROLOL
  11. ASPIRIN (ACETYLSALICYLIC ACID) (ACETYLSALICYLIC ACID) [Concomitant]
     Active Substance: ASPIRIN
  12. CYCLOBENZAPRINE [Concomitant]
     Active Substance: CYCLOBENZAPRINE
  13. CLOPIDOGREL [Concomitant]
     Active Substance: CLOPIDOGREL BISULFATE
  14. ZOLPIDEM (ZOLPIDEM) [Concomitant]
     Active Substance: ZOLPIDEM TARTRATE

REACTIONS (1)
  - Deep vein thrombosis [None]

NARRATIVE: CASE EVENT DATE: 20140626
